FAERS Safety Report 5922772-7 (Version None)
Quarter: 2008Q4

REPORT INFORMATION
  Report Type: 
  Country: None (occurrence: None)
  Receive Date: 20081017
  Receipt Date: 20081007
  Transmission Date: 20090506
  Serious: Yes (Hospitalization)
  Sender: FDA-Public Use
  Company Number: US-CVT-080087

PATIENT

DRUGS (2)
  1. RANEXA [Suspect]
     Indication: ANGINA PECTORIS
     Dosage: 500 MG, BID
     Route: 048
     Dates: start: 20080827, end: 20080919
  2. RANEXA [Suspect]
     Dosage: 1000 MG, BID
     Route: 048
     Dates: start: 20080920

REACTIONS (3)
  - AGGRESSION [None]
  - DELIRIUM [None]
  - HALLUCINATION, VISUAL [None]
